FAERS Safety Report 7965078-7 (Version None)
Quarter: 2011Q4

REPORT INFORMATION
  Report Type: 
  Country: None (occurrence: None)
  Receive Date: 20111208
  Receipt Date: 20111130
  Transmission Date: 20120403
  Serious: Yes (Hospitalization)
  Sender: FDA-Public Use
  Company Number: RU-ROCHE-528374

PATIENT
  Sex: Male
  Weight: 93 kg

DRUGS (5)
  1. NIMESULIDE [Suspect]
     Indication: PRODUCT USED FOR UNKNOWN INDICATION
  2. ACTEMRA [Suspect]
     Indication: RHEUMATOID ARTHRITIS
     Route: 042
  3. ACTEMRA [Suspect]
     Indication: RHEUMATOID ARTHRITIS
     Dosage: DOSAGE FROM REPORTED AS FLACON.
     Route: 042
     Dates: start: 20060912, end: 20071106
  4. RANITIDINE HCL [Concomitant]
     Dates: start: 20060123, end: 20071028
  5. CHLOROQUINE [Suspect]
     Indication: PRODUCT USED FOR UNKNOWN INDICATION

REACTIONS (3)
  - GASTRITIS EROSIVE [None]
  - GASTROINTESTINAL EROSION [None]
  - EROSIVE DUODENITIS [None]
